FAERS Safety Report 11876068 (Version 1)
Quarter: 2015Q4

REPORT INFORMATION
  Report Type: Report from Study
  Country: HR (occurrence: HR)
  Receive Date: 20151229
  Receipt Date: 20151229
  Transmission Date: 20160305
  Serious: Yes (Hospitalization, Other)
  Sender: FDA-Public Use
  Company Number: PHHY2015HR163813

PATIENT
  Age: 48 Year
  Sex: Male

DRUGS (12)
  1. MYFORTIC [Suspect]
     Active Substance: MYCOPHENOLATE SODIUM
     Indication: RENAL TRANSPLANT
  2. DAKTARIN                                /BEL/ [Concomitant]
     Indication: PROPHYLAXIS
     Dosage: UNK
     Route: 048
     Dates: start: 20140626
  3. DAKTARIN                                /BEL/ [Concomitant]
     Indication: CANDIDA INFECTION
  4. SORTIS [Concomitant]
     Active Substance: ATORVASTATIN
     Indication: HYPERLIPIDAEMIA
     Dosage: 10 MG, QD
     Route: 048
     Dates: start: 2013
  5. PROGRAF [Suspect]
     Active Substance: TACROLIMUS\TACROLIMUS ANHYDROUS
     Indication: RENAL TRANSPLANT
  6. DECORTIN [Suspect]
     Active Substance: PREDNISONE
     Indication: PROPHYLAXIS AGAINST TRANSPLANT REJECTION
     Dosage: 5 MG, QD
     Route: 048
     Dates: start: 20130101
  7. SORBISTERIT [Concomitant]
     Indication: HYPERKALAEMIA
     Dosage: UNK
     Route: 048
     Dates: start: 20141218
  8. MYFORTIC [Suspect]
     Active Substance: MYCOPHENOLATE SODIUM
     Indication: PROPHYLAXIS AGAINST TRANSPLANT REJECTION
     Dosage: 720 MG, QD
     Route: 048
     Dates: start: 20130101
  9. PROGRAF [Suspect]
     Active Substance: TACROLIMUS\TACROLIMUS ANHYDROUS
     Indication: PROPHYLAXIS AGAINST TRANSPLANT REJECTION
     Dosage: 2.5 MG, QD
     Route: 048
     Dates: start: 20130101
  10. CONTROLOC [Concomitant]
     Active Substance: PANTOPRAZOLE SODIUM
     Indication: PROPHYLAXIS
     Dosage: 20 MG, QD
     Route: 048
     Dates: start: 2009
  11. DECORTIN [Suspect]
     Active Substance: PREDNISONE
     Indication: RENAL TRANSPLANT
  12. NO TREATMENT RECEIVED [Suspect]
     Active Substance: UNSPECIFIED INGREDIENT
     Indication: PRODUCT USED FOR UNKNOWN INDICATION
     Dosage: UNK
     Route: 065

REACTIONS (2)
  - Gangrene [Recovered/Resolved with Sequelae]
  - Candida infection [Recovered/Resolved]

NARRATIVE: CASE EVENT DATE: 20150302
